FAERS Safety Report 8076323-4 (Version None)
Quarter: 2012Q1

REPORT INFORMATION
  Report Type: 
  Country: None (occurrence: None)
  Receive Date: 20120127
  Receipt Date: 20120120
  Transmission Date: 20120608
  Serious: Yes (Other)
  Sender: FDA-Public Use
  Company Number: US-ROXANE LABORATORIES, INC.-2012-RO-00511RO

PATIENT
  Sex: Male
  Weight: 0.43 kg

DRUGS (6)
  1. RITONAVIR [Suspect]
     Indication: ANTIVIRAL TREATMENT
     Dosage: 200 MG
     Route: 064
     Dates: start: 20110428, end: 20110518
  2. RITONAVIR [Suspect]
     Dosage: 100 MG
     Route: 048
     Dates: start: 20110519
  3. ZIDOVUDINE [Suspect]
     Indication: ANTIVIRAL TREATMENT
     Route: 064
     Dates: start: 20110915, end: 20110915
  4. LAMIVUDINE + ZIDOVUDINE [Suspect]
     Indication: ANTIVIRAL TREATMENT
     Route: 064
     Dates: start: 20110421, end: 20110915
  5. DARUNAVIR ETHANOLATE [Suspect]
     Indication: ANTIVIRAL TREATMENT
     Dosage: 800 MG
     Route: 064
     Dates: start: 20110428
  6. LOPINAVIR/RITONAVIR [Suspect]
     Indication: ANTIVIRAL TREATMENT
     Route: 064
     Dates: start: 20110421, end: 20110428

REACTIONS (3)
  - FOETAL GROWTH RESTRICTION [None]
  - PREMATURE BABY [None]
  - MATERNAL DRUGS AFFECTING FOETUS [None]
